FAERS Safety Report 5975974-8 (Version None)
Quarter: 2008Q4

REPORT INFORMATION
  Report Type: 
  Country: None (occurrence: None)
  Receive Date: 20081202
  Receipt Date: 20081121
  Transmission Date: 20090506
  Serious: Yes (Hospitalization)
  Sender: FDA-Public Use
  Company Number: GXKR2008GB11136

PATIENT
  Age: 31 Year
  Sex: Male

DRUGS (12)
  1. CLOZAPINE [Suspect]
     Indication: SCHIZOPHRENIA
     Dosage: 300 MG, UNK
     Route: 048
     Dates: start: 20040101, end: 20080723
  2. FERROUS SULFATE TAB [Suspect]
     Indication: ANAEMIA
     Dosage: 200 MG, TID
     Route: 048
     Dates: start: 20080610, end: 20080714
  3. AMISULPRIDE [Concomitant]
  4. ASCORBIC ACID [Concomitant]
  5. BECLOMETHASONE DIPROPIONATE [Concomitant]
  6. FYBOGEL [Concomitant]
  7. IPRATROPIUM BROMIDE [Concomitant]
  8. LACTULOSE [Concomitant]
  9. LANSOPRAZOLE [Concomitant]
  10. OFLOXACIN [Concomitant]
     Indication: ORCHITIS
  11. ALBUTEROL SULFATE [Concomitant]
  12. VALPROATE SODIUM [Concomitant]

REACTIONS (5)
  - ABDOMINAL PAIN [None]
  - COLOSTOMY [None]
  - NECROTISING COLITIS [None]
  - PYREXIA [None]
  - VOMITING [None]
